FAERS Safety Report 5146575-9 (Version None)
Quarter: 2006Q4

REPORT INFORMATION
  Report Type: 
  Country: None (occurrence: None)
  Receive Date: 20061109
  Receipt Date: 20061027
  Transmission Date: 20070319
  Serious: Yes (Hospitalization)
  Sender: FDA-Public Use
  Company Number: US-AMGEN-STX198568

PATIENT
  Sex: Male

DRUGS (2)
  1. ENBREL [Suspect]
     Indication: PSORIATIC ARTHROPATHY
     Route: 058
     Dates: start: 20040201
  2. ENBREL [Suspect]
     Indication: PSORIASIS

REACTIONS (2)
  - CORONARY ARTERY BYPASS [None]
  - INJECTION SITE PAIN [None]
